FAERS Safety Report 9637867 (Version 2)
Quarter: 2013Q4

REPORT INFORMATION
  Report Type: Spontaneous
  Country: JP (occurrence: JP)
  Receive Date: 20131022
  Receipt Date: 20131029
  Transmission Date: 20140711
  Serious: No
  Sender: FDA-Public Use
  Company Number: JP-PFIZER INC-2013296597

PATIENT
  Age: 46 Year
  Sex: Female

DRUGS (1)
  1. ZITHROMAC SR [Suspect]
     Indication: GINGIVITIS
     Dosage: 2 G, SINGLE
     Route: 048
     Dates: start: 20131015, end: 20131015

REACTIONS (4)
  - Pyrexia [Recovering/Resolving]
  - Diarrhoea [Recovering/Resolving]
  - Chills [Recovering/Resolving]
  - Fatigue [Unknown]
